FAERS Safety Report 20077117 (Version 1)
Quarter: 2021Q4

REPORT INFORMATION
  Report Type: Report from Study
  Country: US (occurrence: US)
  Receive Date: 20211116
  Receipt Date: 20211116
  Transmission Date: 20220303
  Serious: No
  Sender: FDA-Public Use
  Company Number: US-TG THERAPEUTICS INC.-TGT002185

PATIENT
  Sex: Male

DRUGS (2)
  1. UMBRALISIB [Suspect]
     Active Substance: UMBRALISIB
     Indication: Lymphoma
     Dosage: 800 MILLIGRAM, QD WITH FOOD
     Route: 048
     Dates: start: 20210918
  2. LACTULOSE [Suspect]
     Active Substance: LACTULOSE
     Indication: Product used for unknown indication
     Dosage: 30 MILLILITER, BID, MORNING AND NIGHT
     Route: 048

REACTIONS (1)
  - Diarrhoea [Recovered/Resolved]
